FAERS Safety Report 12542028 (Version 1)
Quarter: 2016Q3

REPORT INFORMATION
  Report Type: Spontaneous
  Country: GB (occurrence: GB)
  Receive Date: 20160708
  Receipt Date: 20160708
  Transmission Date: 20161109
  Serious: Yes (Other)
  Sender: FDA-Public Use
  Company Number: PHHY2016GB090206

PATIENT
  Age: 73 Year
  Sex: Female
  Weight: 56.24 kg

DRUGS (1)
  1. CLARITHROMYCIN. [Suspect]
     Active Substance: CLARITHROMYCIN
     Indication: BREAST PAIN
     Dosage: 500 MG, BID
     Route: 048
     Dates: end: 20160614

REACTIONS (5)
  - Myalgia [Recovering/Resolving]
  - Abdominal pain [Recovering/Resolving]
  - Dysgeusia [Recovering/Resolving]
  - Pain in extremity [Recovering/Resolving]
  - Malaise [Recovering/Resolving]

NARRATIVE: CASE EVENT DATE: 20160614
